FAERS Safety Report 5030432-2 (Version None)
Quarter: 2006Q2

REPORT INFORMATION
  Report Type: 
  Country: None (occurrence: None)
  Receive Date: 20060615
  Receipt Date: 20060530
  Transmission Date: 20061013
  Serious: Yes (Life-Threatening, Other)
  Sender: FDA-Public Use
  Company Number: US200605003341

PATIENT
  Age: 70 Year
  Sex: Male

DRUGS (10)
  1. CYMBALTA [Suspect]
     Indication: DEPRESSION
     Dosage: 30 MG, DAILY (1/D)
     Dates: end: 20060514
  2. LIPITOR [Concomitant]
  3. FLOMAX [Concomitant]
  4. ALTACE [Concomitant]
  5. AMARYL /SWE/ (GLIMEPIRIDE) [Concomitant]
  6. AVANDIA [Concomitant]
  7. PREGABALIN [Concomitant]
  8. PLAVIX [Concomitant]
  9. NEXIUM [Concomitant]
  10. ASPIRIN [Concomitant]

REACTIONS (3)
  - BLOOD GLUCOSE INCREASED [None]
  - HYPOGLYCAEMIA [None]
  - LOSS OF CONSCIOUSNESS [None]
